FAERS Safety Report 23881835 (Version 3)
Quarter: 2024Q2

REPORT INFORMATION
  Report Type: Spontaneous
  Country: US (occurrence: US)
  Receive Date: 20240521
  Receipt Date: 20240625
  Transmission Date: 20240716
  Serious: Yes (Other)
  Sender: FDA-Public Use
  Company Number: US-PFIZER INC-202400172531

PATIENT
  Age: 59 Year
  Sex: Female
  Weight: 61.23 kg

DRUGS (15)
  1. NURTEC ODT [Suspect]
     Active Substance: RIMEGEPANT SULFATE
     Indication: Headache
     Dosage: 75 MG, ALTERNATE DAY (MELTS UNDER TONGUE/DISSOLVE 1 TABLET ON TONGUE EVERY OTHER DAY)
     Route: 048
     Dates: start: 202405, end: 20240516
  2. NURTEC ODT [Suspect]
     Active Substance: RIMEGEPANT SULFATE
     Indication: Prophylaxis
  3. MODAFINIL [Concomitant]
     Active Substance: MODAFINIL
     Indication: Fatigue
     Dosage: 200 MG
  4. PREDNISONE [Concomitant]
     Active Substance: PREDNISONE
     Indication: Status migrainosus
     Dosage: TAPER
  5. DALFAMPRIDINE [Concomitant]
     Active Substance: DALFAMPRIDINE
     Indication: Gait disturbance
     Dosage: 10 MG
  6. WELLBUTRIN XL [Concomitant]
     Active Substance: BUPROPION HYDROCHLORIDE
     Indication: Depression
     Dosage: 300 MG
  7. ATORVASTATIN [Concomitant]
     Active Substance: ATORVASTATIN
     Indication: Blood cholesterol abnormal
     Dosage: 20 MG
  8. CLONAZEPAM [Concomitant]
     Active Substance: CLONAZEPAM
     Indication: Anxiety
     Dosage: 2.5 MG
  9. LUBIPROSTONE [Concomitant]
     Active Substance: LUBIPROSTONE
     Dosage: UNK
  10. ESOMEPRAZOLE [Concomitant]
     Active Substance: ESOMEPRAZOLE
     Indication: Gastrooesophageal reflux disease
     Dosage: UNK
  11. TOLTERODINE [Concomitant]
     Active Substance: TOLTERODINE
     Indication: Bladder disorder
     Dosage: 2 MG
  12. MOTEGRITY [Concomitant]
     Active Substance: PRUCALOPRIDE SUCCINATE
     Indication: Abdominal discomfort
     Dosage: 2 MG
  13. TAMSULOSIN [Concomitant]
     Active Substance: TAMSULOSIN
     Indication: Bladder disorder
     Dosage: 0.4 MG
  14. TROSPIUM [Concomitant]
     Active Substance: TROSPIUM
     Indication: Bladder disorder
     Dosage: UNK
  15. OCREVUS [Concomitant]
     Active Substance: OCRELIZUMAB
     Indication: Multiple sclerosis
     Dosage: UNK

REACTIONS (8)
  - Fall [Unknown]
  - Head injury [Unknown]
  - Drug ineffective [Unknown]
  - Contusion [Unknown]
  - Vertigo [Recovering/Resolving]
  - Dizziness [Not Recovered/Not Resolved]
  - Feeling abnormal [Unknown]
  - Off label use [Unknown]

NARRATIVE: CASE EVENT DATE: 20240101
